FAERS Safety Report 7225920-4 (Version None)
Quarter: 2011Q1

REPORT INFORMATION
  Report Type: 
  Country: None (occurrence: None)
  Receive Date: 20110113
  Receipt Date: 20110110
  Transmission Date: 20110831
  Serious: Yes (Other)
  Sender: FDA-Public Use
  Company Number: IE-PFIZER INC-2011006073

PATIENT
  Age: 41 Year
  Sex: Female

DRUGS (3)
  1. PROZAC [Interacting]
     Dosage: 80 MG, UNK
  2. CHAMPIX [Suspect]
     Indication: SMOKING CESSATION THERAPY
     Dosage: UNK
     Dates: start: 20101001
  3. PROZAC [Interacting]
     Dosage: 40 MG, UNK

REACTIONS (3)
  - DRUG INTERACTION [None]
  - AMNESIA [None]
  - DISORIENTATION [None]
